FAERS Safety Report 9266259 (Version 1)
Quarter: 2013Q2

REPORT INFORMATION
  Report Type: Spontaneous
  Country: BR (occurrence: BR)
  Receive Date: 20130502
  Receipt Date: 20130502
  Transmission Date: 20140414
  Serious: Yes (Other)
  Sender: FDA-Public Use
  Company Number: BR-RANBAXY-2013R5-68378

PATIENT
  Age: 29 Year
  Sex: Male
  Weight: 79 kg

DRUGS (1)
  1. CEFUROXIME AXETIL [Suspect]
     Indication: NEPHRITIS
     Dosage: UNK
     Route: 048
     Dates: start: 20130403, end: 20130406

REACTIONS (2)
  - Drug ineffective [Unknown]
  - Nephritis [Unknown]
